FAERS Safety Report 9335841 (Version 1)
Quarter: 2013Q2

REPORT INFORMATION
  Report Type: Spontaneous
  Country: US (occurrence: US)
  Receive Date: 20130606
  Receipt Date: 20130606
  Transmission Date: 20140414
  Serious: No
  Sender: FDA-Public Use
  Company Number: US-AMGEN-USASP2013027503

PATIENT
  Age: 64 Year
  Sex: Female
  Weight: 55.56 kg

DRUGS (5)
  1. PROLIA [Suspect]
     Indication: OSTEOPOROSIS POSTMENOPAUSAL
     Dosage: 60 MG, Q6MO
     Route: 058
     Dates: start: 20121129
  2. IMITREX                            /01044801/ [Concomitant]
     Indication: MIGRAINE
     Dosage: 50 MG, AS NECESSARY
  3. AMBIEN [Concomitant]
  4. LORTAB                             /00607101/ [Concomitant]
  5. VALERIAN 2000 COMPLEX [Concomitant]
     Dosage: UNK UNK, AS NECESSARY

REACTIONS (6)
  - Discomfort [Unknown]
  - Restlessness [Unknown]
  - Agitation [Unknown]
  - Back pain [Unknown]
  - Insomnia [Unknown]
  - Pain [Unknown]
